FAERS Safety Report 7432768-4 (Version None)
Quarter: 2011Q2

REPORT INFORMATION
  Report Type: 
  Country: None (occurrence: None)
  Receive Date: 20110422
  Receipt Date: 20110420
  Transmission Date: 20111010
  Serious: Yes (Hospitalization)
  Sender: FDA-Public Use
  Company Number: B0603566A

PATIENT
  Sex: Female
  Weight: 60 kg

DRUGS (3)
  1. LOPERAMIDE [Concomitant]
     Dosage: 2MG SIX TIMES PER DAY
     Route: 048
     Dates: start: 20091013, end: 20091019
  2. LAPATINIB [Suspect]
     Indication: BREAST CANCER
     Dosage: 1500MG PER DAY
     Route: 048
     Dates: start: 20090915
  3. PACLITAXEL [Suspect]
     Indication: BREAST CANCER
     Dosage: 80MGM2 WEEKLY
     Route: 042
     Dates: start: 20090915

REACTIONS (3)
  - NEUTROPENIA [None]
  - DIARRHOEA [None]
  - FATIGUE [None]
